FAERS Safety Report 8275432-4 (Version None)
Quarter: 2012Q2

REPORT INFORMATION
  Report Type: 
  Country: None (occurrence: None)
  Receive Date: 20120411
  Receipt Date: 20120326
  Transmission Date: 20120825
  Serious: Yes (Other)
  Sender: FDA-Public Use
  Company Number: PHHY2012JP027398

PATIENT
  Age: 30 Year
  Sex: Female

DRUGS (5)
  1. CYCLOSPORINE [Suspect]
     Dosage: 30 MG, UNK
     Route: 048
  2. CYCLOSPORINE [Suspect]
     Dosage: 10 MG, UNK
     Route: 048
  3. CYCLOSPORINE [Suspect]
     Indication: STEM CELL TRANSPLANT
     Dosage: 80 MG, UNK
     Route: 048
  4. METHOTREXATE [Concomitant]
     Indication: PROPHYLAXIS AGAINST GRAFT VERSUS HOST DISEASE
  5. IMATINIB MESYLATE [Suspect]
     Indication: CHRONIC MYELOID LEUKAEMIA
     Dosage: 600 MG, UNK
     Route: 048
     Dates: start: 20080101, end: 20090401

REACTIONS (4)
  - GRAFT VERSUS HOST DISEASE IN SKIN [None]
  - NEOPLASM RECURRENCE [None]
  - BONE MARROW FAILURE [None]
  - PANCYTOPENIA [None]
